FAERS Safety Report 5654145-9 (Version None)
Quarter: 2008Q1

REPORT INFORMATION
  Report Type: 
  Country: None (occurrence: None)
  Receive Date: 20080306
  Receipt Date: 20080213
  Transmission Date: 20080703
  Serious: No
  Sender: FDA-Public Use
  Company Number: US-BOEHRINGER INGELHEIM GMBH, GERMANY-2008-BP-02262BP

PATIENT
  Sex: Male

DRUGS (4)
  1. SPIRIVA [Suspect]
     Indication: CHRONIC OBSTRUCTIVE PULMONARY DISEASE
     Route: 055
     Dates: start: 20080101, end: 20080101
  2. ASPIRIN [Concomitant]
  3. COMBIVENT [Concomitant]
     Indication: EMPHYSEMA
  4. PROAIR HFA [Concomitant]
     Indication: EMPHYSEMA

REACTIONS (2)
  - CHEST PAIN [None]
  - DYSPNOEA [None]
